FAERS Safety Report 7864670-8 (Version None)
Quarter: 2011Q4

REPORT INFORMATION
  Report Type: 
  Country: None (occurrence: None)
  Receive Date: 20111028
  Receipt Date: 20111026
  Transmission Date: 20120403
  Serious: Yes (Hospitalization)
  Sender: FDA-Public Use
  Company Number: FR-SANOFI-AVENTIS-2010SA033276

PATIENT
  Age: 62 Year
  Sex: Female

DRUGS (11)
  1. INDAPAMIDE [Suspect]
     Route: 048
  2. NOVOLOG MIX 70/30 [Concomitant]
  3. IPERTEN [Suspect]
     Route: 065
     Dates: start: 20090301
  4. IRBESARTAN [Suspect]
     Route: 048
     Dates: start: 20040801, end: 20100520
  5. INSULIN DETEMIR [Concomitant]
  6. ALENDRONIC ACID [Suspect]
     Route: 065
     Dates: start: 20080101
  7. DIGOXIN [Suspect]
     Route: 065
     Dates: start: 19860101
  8. IRBESARTAN [Suspect]
     Route: 048
     Dates: start: 20110521
  9. PREVISCAN [Suspect]
     Route: 065
     Dates: start: 19990101
  10. OROCAL [Suspect]
     Route: 065
  11. METFORMIN HCL [Suspect]
     Route: 065
     Dates: start: 20090101

REACTIONS (5)
  - BLOOD CREATINE PHOSPHOKINASE INCREASED [None]
  - MYALGIA [None]
  - CYTOLYTIC HEPATITIS [None]
  - RHABDOMYOLYSIS [None]
  - BLOOD LACTIC ACID INCREASED [None]
